FAERS Safety Report 8163142-3 (Version None)
Quarter: 2012Q1

REPORT INFORMATION
  Report Type: 
  Country: None (occurrence: None)
  Receive Date: 20120224
  Receipt Date: 20110627
  Transmission Date: 20120608
  Serious: No
  Sender: FDA-Public Use
  Company Number: US-PFIZER INC-K201100769

PATIENT
  Age: 57 Year
  Sex: Female

DRUGS (4)
  1. ACETAMINOPHEN [Concomitant]
  2. FLECTOR [Suspect]
     Indication: NECK PAIN
     Dosage: 1 PATCH CUT IN STRIPS, SINGLE
     Route: 061
     Dates: start: 20110624, end: 20110624
  3. FLECTOR [Suspect]
     Indication: PAIN IN EXTREMITY
  4. FLECTOR [Suspect]
     Indication: PAIN

REACTIONS (1)
  - ARTHRALGIA [None]
